FAERS Safety Report 6478006-0 (Version None)
Quarter: 2009Q4

REPORT INFORMATION
  Report Type: 
  Country: None (occurrence: None)
  Receive Date: 20091207
  Receipt Date: 20091201
  Transmission Date: 20100525
  Serious: Yes (Hospitalization)
  Sender: FDA-Public Use
  Company Number: B0610537A

PATIENT
  Sex: Male

DRUGS (5)
  1. RELENZA [Suspect]
     Indication: INFLUENZA
     Dosage: 10MG TWICE PER DAY
     Route: 055
     Dates: start: 20091128, end: 20091129
  2. CLARITH [Suspect]
     Route: 048
  3. METHISTA [Suspect]
     Route: 048
  4. COLDRIN [Suspect]
     Route: 048
  5. CALONAL [Suspect]
     Route: 065

REACTIONS (2)
  - HAEMORRHAGIC DIATHESIS [None]
  - PLATELET COUNT DECREASED [None]
